FAERS Safety Report 8142338-0 (Version None)
Quarter: 2012Q1

REPORT INFORMATION
  Report Type: 
  Country: None (occurrence: None)
  Receive Date: 20120216
  Receipt Date: 20120201
  Transmission Date: 20120608
  Serious: Yes (Life-Threatening, Other)
  Sender: FDA-Public Use
  Company Number: CHPA2012US002518

PATIENT
  Sex: Female

DRUGS (1)
  1. EXCEDRIN EXTRA STRENGTH TABLETS [Suspect]
     Indication: HEADACHE
     Dosage: 4-6 DF QAM AND 3-4 DF 4-5 TIMES THROUGHOUT THE DAY
     Route: 048
     Dates: start: 19920101

REACTIONS (4)
  - DRUG DEPENDENCE [None]
  - OVERDOSE [None]
  - PEPTIC ULCER PERFORATION [None]
  - PEPTIC ULCER [None]
